FAERS Safety Report 8002865-3 (Version None)
Quarter: 2011Q4

REPORT INFORMATION
  Report Type: 
  Country: None (occurrence: None)
  Receive Date: 20111222
  Receipt Date: 20110107
  Transmission Date: 20120403
  Serious: No
  Sender: FDA-Public Use
  Company Number: US-GLAXOSMITHKLINE-A0904083A

PATIENT
  Age: 79 Year
  Sex: Male

DRUGS (9)
  1. AVODART [Suspect]
     Indication: BENIGN PROSTATIC HYPERPLASIA
     Dosage: .5MG PER DAY
     Route: 048
     Dates: start: 20090801, end: 20100701
  2. DILTIAZEM HCL [Concomitant]
  3. METFORMIN HCL [Concomitant]
  4. ASPIRIN [Concomitant]
  5. FLOMAX [Concomitant]
  6. ACETAMINOPHEN [Concomitant]
  7. FOSINOPRIL SODIUM [Concomitant]
  8. NYSTATIN [Concomitant]
  9. SIMVASTATIN [Concomitant]

REACTIONS (1)
  - DRUG INEFFECTIVE [None]
